FAERS Safety Report 26045247 (Version 1)
Quarter: 2025Q4

REPORT INFORMATION
  Report Type: Report from Study
  Country: US (occurrence: None)
  Receive Date: 20251114
  Receipt Date: 20251114
  Transmission Date: 20260118
  Serious: Yes (Other)
  Sender: UCB
  Company Number: US-UCBSA-2025070796

PATIENT
  Age: 62 Year

DRUGS (2)
  1. BIMEKIZUMAB [Suspect]
     Active Substance: BIMEKIZUMAB
     Indication: Psoriasis
     Dosage: 320 MILLIGRAM, EV 4 WEEKS
  2. BIMEKIZUMAB [Suspect]
     Active Substance: BIMEKIZUMAB
     Dosage: 320 MILLIGRAM, EV 8 WEEKS

REACTIONS (6)
  - Burns third degree [Recovering/Resolving]
  - Endodontic procedure [Recovered/Resolved]
  - Tooth infection [Recovered/Resolved]
  - Tooth socket haemorrhage [Recovered/Resolved]
  - Psoriasis [Recovering/Resolving]
  - Nail infection [Recovering/Resolving]
